FAERS Safety Report 25689193 (Version 2)
Quarter: 2025Q3

REPORT INFORMATION
  Report Type: Spontaneous
  Country: EU (occurrence: EU)
  Receive Date: 20250818
  Receipt Date: 20250826
  Transmission Date: 20251020
  Serious: Yes (Hospitalization, Other)
  Sender: AUROBINDO
  Company Number: EU-AUROBINDO-AUR-APL-2025-041786

PATIENT
  Age: 54 Year
  Sex: Female

DRUGS (11)
  1. VALGANCICLOVIR [Suspect]
     Active Substance: VALGANCICLOVIR
     Indication: Prophylaxis
     Route: 048
  2. VALGANCICLOVIR [Suspect]
     Active Substance: VALGANCICLOVIR
     Indication: Cytomegalovirus infection
     Dosage: 900 MILLIGRAM, TWO TIMES A DAY
     Route: 048
  3. GANCICLOVIR [Suspect]
     Active Substance: GANCICLOVIR
     Indication: Cytomegalovirus infection
     Route: 042
  4. TACROLIMUS [Concomitant]
     Active Substance: TACROLIMUS
     Indication: Immunosuppressant drug therapy
     Route: 065
  5. PREDNISONE [Concomitant]
     Active Substance: PREDNISONE
     Indication: Immunosuppressant drug therapy
     Route: 065
  6. ERYTHROPOIETIN [Concomitant]
     Active Substance: ERYTHROPOIETIN
     Indication: Anaemia
     Route: 065
  7. FOSCARNET [Concomitant]
     Active Substance: FOSCARNET
     Indication: Cytomegalovirus infection
     Route: 065
  8. LETERMOVIR [Concomitant]
     Active Substance: LETERMOVIR
     Indication: Cytomegalovirus infection
     Route: 065
  9. MARIBAVIR [Concomitant]
     Active Substance: MARIBAVIR
     Indication: Cytomegalovirus infection
     Route: 065
  10. NOREPINEPHRINE BITARTRATE [Concomitant]
     Active Substance: NOREPINEPHRINE BITARTRATE
     Indication: Product used for unknown indication
     Route: 065
  11. Immunoglobulin [Concomitant]
     Indication: Cytomegalovirus infection
     Route: 065

REACTIONS (2)
  - Pathogen resistance [Unknown]
  - Drug resistance [Unknown]
